FAERS Safety Report 6399248-9 (Version None)
Quarter: 2009Q4

REPORT INFORMATION
  Report Type: 
  Country: None (occurrence: None)
  Receive Date: 20091014
  Receipt Date: 20091005
  Transmission Date: 20100525
  Serious: Yes (Hospitalization)
  Sender: FDA-Public Use
  Company Number: GB-RANBAXY-2009RR-28452

PATIENT
  Age: 61 Year
  Sex: Male

DRUGS (4)
  1. IBUPROFEN [Suspect]
     Dosage: 400 MG, TID
     Route: 048
     Dates: end: 20090903
  2. CO-CODAMOL [Concomitant]
     Indication: BACK PAIN
     Dosage: 2 DF, PRN
     Route: 048
  3. PROPRANOLOL [Concomitant]
     Indication: HYPERTENSION
     Dosage: 40 MG, BID
     Route: 048
     Dates: start: 20090903
  4. QUININE BISULPHATE [Concomitant]
     Indication: MUSCLE SPASMS
     Dosage: 300 MG, QD

REACTIONS (4)
  - DUODENAL ULCER [None]
  - HAEMATEMESIS [None]
  - MELAENA [None]
  - VARICES OESOPHAGEAL [None]
